FAERS Safety Report 7046050-0 (Version None)
Quarter: 2010Q4

REPORT INFORMATION
  Report Type: 
  Country: None (occurrence: None)
  Receive Date: 20101014
  Receipt Date: 20101001
  Transmission Date: 20110411
  Serious: Yes (Hospitalization)
  Sender: FDA-Public Use
  Company Number: DE-MYLANLABS-2010S1018077

PATIENT
  Age: 84 Year
  Sex: Female
  Weight: 55 kg

DRUGS (5)
  1. CITALOPRAM HYDROBROMIDE [Suspect]
     Indication: DEPRESSION
     Route: 048
     Dates: start: 20100301, end: 20100817
  2. METOPROLOL SUCCINATE [Suspect]
     Indication: HYPERTENSION
     Dosage: DOSIS ERHOHT AB 4.9. AUF 2X95 MG/D
     Route: 048
     Dates: start: 20000101
  3. METOPROLOL SUCCINATE [Suspect]
     Route: 048
     Dates: start: 20100904
  4. FALITHROM [Suspect]
     Indication: ATRIAL FIBRILLATION
     Dosage: 10.8. - 16.8.: 3,2,1,1,1,1/2,1
     Route: 048
     Dates: start: 20100810, end: 20100817
  5. MOLSIDOMINE [Concomitant]
     Indication: ANGINA PECTORIS
     Route: 048
     Dates: start: 20000101

REACTIONS (1)
  - LIVER DISORDER [None]
